FAERS Safety Report 7627775-2 (Version None)
Quarter: 2011Q3

REPORT INFORMATION
  Report Type: 
  Country: None (occurrence: None)
  Receive Date: 20110721
  Receipt Date: 20110718
  Transmission Date: 20111222
  Serious: Yes (Life-Threatening, Hospitalization, Other)
  Sender: FDA-Public Use
  Company Number: PHHY2011LV59103

PATIENT
  Sex: Male
  Weight: 77 kg

DRUGS (6)
  1. GLEEVEC [Suspect]
     Dosage: 400 MG, DAILY
     Route: 048
  2. GLEEVEC [Suspect]
     Dosage: 300 MG,DAILY
     Dates: start: 20110418
  3. GLEEVEC [Suspect]
     Indication: CHRONIC MYELOID LEUKAEMIA
     Dosage: 600 MG, DAILY
     Route: 048
     Dates: start: 20010616, end: 20090713
  4. GLEEVEC [Suspect]
     Dosage: 400 MG, DAILY
     Route: 048
     Dates: start: 20110131, end: 20110418
  5. METOPROLOL TARTRATE [Concomitant]
     Dosage: 300 MG DAILY
  6. GLEEVEC [Suspect]
     Dosage: 300 MG, DAILY
     Route: 048
     Dates: start: 20090713, end: 20110131

REACTIONS (7)
  - HAEMOGLOBIN ABNORMAL [None]
  - VITAMIN B12 INCREASED [None]
  - LEUKOCYTOSIS [None]
  - IRON DEFICIENCY ANAEMIA [None]
  - SERUM FERRITIN DECREASED [None]
  - NEUTROPHIL COUNT INCREASED [None]
  - CHRONIC MYELOID LEUKAEMIA TRANSFORMATION [None]
